FAERS Safety Report 9362833 (Version 1)
Quarter: 2013Q2

REPORT INFORMATION
  Report Type: Spontaneous
  Country: US (occurrence: US)
  Receive Date: 20130624
  Receipt Date: 20130624
  Transmission Date: 20140414
  Serious: No
  Sender: FDA-Public Use
  Company Number: US-009507513-1306USA009235

PATIENT
  Age: 64 Year
  Sex: Male

DRUGS (3)
  1. VICTRELIS [Suspect]
     Indication: CHRONIC HEPATITIS C
     Dosage: 800 MG, TID
     Route: 048
     Dates: start: 20130402
  2. RIBASPHERE [Suspect]
     Dosage: 600 MG, BID
     Route: 048
  3. PEGASYS [Suspect]
     Dosage: 180 MCG/0.5 ML, EVERY WEEK
     Route: 058

REACTIONS (3)
  - Rash pruritic [Unknown]
  - Hypersomnia [Unknown]
  - Visual impairment [Unknown]
